FAERS Safety Report 4609700-1 (Version None)
Quarter: 2005Q1

REPORT INFORMATION
  Report Type: 
  Country: None (occurrence: None)
  Receive Date: 20050310
  Receipt Date: 20050225
  Transmission Date: 20050727
  Serious: Yes (Other)
  Sender: FDA-Public Use
  Company Number: 200410439BBE

PATIENT
  Sex: Male

DRUGS (10)
  1. HYPRHO-D [Suspect]
  2. INJECTABLE GLOBUBLIN (JOHNSON AND JOHNSON) (IMMUNOGLOBULIN HUMAN NORMA [Suspect]
  3. INJECTABLE GLOBULIN (ORTHOCLININCAL DIAGNOSTICS ) (IMMUNOGLOBULIN HUMA [Suspect]
  4. INJECTABLE GLOBULINS (AVENTIS PASTEUR) (IMMUNOGLOBULINS) [Suspect]
  5. INJECTABLE GLOBULINS (DOW AGRO SCIENCES) (IMMUNOGLOBULINS) [Suspect]
  6. INJECTABLE GLOBULINS (DOW CHEMICAL COMPANY) (IMMUNOGLOBULINS) [Suspect]
  7. INJECTABLE GLOBULINS (ELI LILLY) (IMMUNOGLOBULINS) [Suspect]
  8. INJECTABLE GLOBULINS (GLAXOSMITHKLINE) (IMMUNOGLOBULINS) [Suspect]
  9. INJECTABLE GLOBULINS (MERCK) (IMMUNOGLOBULINS) [Suspect]
  10. INJECTABLE GLOBULINS (WYETH) (IMMUNOGLOBULINS) [Suspect]

REACTIONS (3)
  - DRUG EXPOSURE DURING PREGNANCY [None]
  - METAL POISONING [None]
  - NEUROTOXICITY [None]
